FAERS Safety Report 20757033 (Version 1)
Quarter: 2022Q2

REPORT INFORMATION
  Report Type: Report from Study
  Country: EG (occurrence: EG)
  Receive Date: 20220427
  Receipt Date: 20220427
  Transmission Date: 20220721
  Serious: Yes (Other)
  Sender: FDA-Public Use
  Company Number: EG-NOVARTISPH-NVSC2022EG097298

PATIENT
  Age: 31 Year
  Sex: Female

DRUGS (3)
  1. GILENYA [Suspect]
     Active Substance: FINGOLIMOD HYDROCHLORIDE
     Indication: Multiple sclerosis
     Dosage: 0.5 MG, QD
     Route: 048
     Dates: start: 202112
  2. VITAMIN B-COMPLEX [Concomitant]
     Active Substance: DEXPANTHENOL\NIACINAMIDE\PYRIDOXINE HYDROCHLORIDE\RIBOFLAVIN 5^-PHOSPHATE SODIUM\THIAMINE HYDROCHLOR
     Indication: Multiple sclerosis
     Dosage: 1 DOSAGE FORM, QD
     Route: 065
     Dates: start: 20211101
  3. OMEGA 3 [Concomitant]
     Active Substance: CAPSAICIN
     Indication: Multiple sclerosis
     Dosage: 1 DOSAGE FORM, QD
     Route: 065
     Dates: start: 202201

REACTIONS (3)
  - White blood cell count decreased [Not Recovered/Not Resolved]
  - Ovarian neoplasm [Not Recovered/Not Resolved]
  - Ovarian cyst [Not Recovered/Not Resolved]

NARRATIVE: CASE EVENT DATE: 20220401
